FAERS Safety Report 20895341 (Version 2)
Quarter: 2022Q2

REPORT INFORMATION
  Report Type: Spontaneous
  Country: GB (occurrence: GB)
  Receive Date: 20220531
  Receipt Date: 20220622
  Transmission Date: 20220721
  Serious: Yes (Death, Other)
  Sender: FDA-Public Use
  Company Number: GB-MYLANLABS-2022M1041291

PATIENT
  Age: 54 Year
  Sex: Male
  Weight: 103.3 kg

DRUGS (6)
  1. CLOZARIL [Suspect]
     Active Substance: CLOZAPINE
     Indication: Schizophrenia
     Dosage: 200 MILLIGRAM, BID (200 MG, TWICE DAILY)
     Route: 048
     Dates: start: 20120726, end: 20220529
  2. LANSOPRAZOLE [Concomitant]
     Active Substance: LANSOPRAZOLE
     Indication: Reflux gastritis
     Dosage: 30 MILLIGRAM, AM (30MG MANE)
     Route: 048
  3. METFORMIN [Concomitant]
     Active Substance: METFORMIN HYDROCHLORIDE
     Indication: Diabetes mellitus
     Dosage: 500 MILLIGRAM, QD (500 MG ONCE DAILY)
     Route: 048
  4. PROCYCLIDINE [Concomitant]
     Active Substance: PROCYCLIDINE
     Indication: Adverse reaction
     Dosage: 2.5 MILLIGRAM, BID (2.5 MG TWICE DAILY)
     Route: 048
  5. SENNA [Concomitant]
     Active Substance: SENNA LEAF\SENNOSIDES\SENNOSIDES A AND B
     Indication: Constipation
     Dosage: 7.5 MILLIGRAM, QD (7.5 MG ONCE DAILY)
     Route: 065
  6. HERBALS\PLANTAGO OVATA SEED [Concomitant]
     Active Substance: HERBALS\PLANTAGO OVATA SEED
     Dosage: 3.5 MILLIGRAM, BID (3.5 MG TWICE DAILY)
     Route: 048

REACTIONS (1)
  - Death [Fatal]

NARRATIVE: CASE EVENT DATE: 20220529
